FAERS Safety Report 11049312 (Version 1)
Quarter: 2015Q2

REPORT INFORMATION
  Report Type: Other
  Country: GB (occurrence: GB)
  Receive Date: 20150420
  Receipt Date: 20150420
  Transmission Date: 20150821
  Serious: Yes (Death)
  Sender: FDA-Public Use
  Company Number: GB-MYLANLABS-2014S1008934

PATIENT

DRUGS (3)
  1. AZATHIOPRINE. [Suspect]
     Active Substance: AZATHIOPRINE
     Indication: COLITIS ULCERATIVE
     Dosage: DOSAGE FORM: UNSPECIFIED, 75-100MG
     Route: 048
     Dates: start: 200506, end: 200709
  2. ASACOL [Concomitant]
     Active Substance: MESALAMINE
     Indication: COLITIS ULCERATIVE
     Dosage: DOSAGE FORM: UNSPECIFIED
     Route: 065
  3. REMICADE [Suspect]
     Active Substance: INFLIXIMAB
     Indication: COLITIS ULCERATIVE
     Dosage: 5 MG/KG (DOSAGE FORM:LYOPHILIZED POWDER,DOSE:295 (UNITS UNSPECIFIED)FREQUENCY: 0,2,6 THEN 8 WEEKLY).
     Route: 042
     Dates: start: 20060320, end: 20070720

REACTIONS (2)
  - Bone marrow failure [Fatal]
  - Rash [Unknown]
